FAERS Safety Report 6153428-6 (Version None)
Quarter: 2009Q2

REPORT INFORMATION
  Report Type: 
  Country: None (occurrence: None)
  Receive Date: 20090409
  Receipt Date: 20090409
  Transmission Date: 20091009
  Serious: No
  Sender: FDA-Public Use
  Company Number: None

PATIENT
  Age: 27 Year
  Sex: Female
  Weight: 57.6068 kg

DRUGS (1)
  1. LEVAQUIN [Suspect]
     Indication: SINUSITIS

REACTIONS (1)
  - ANXIETY [None]
